FAERS Safety Report 8473254-2 (Version None)
Quarter: 2012Q2

REPORT INFORMATION
  Report Type: 
  Country: None (occurrence: None)
  Receive Date: 20120627
  Receipt Date: 20120622
  Transmission Date: 20120825
  Serious: Yes (Other)
  Sender: FDA-Public Use
  Company Number: US-MERCK-1206USA04212

PATIENT
  Age: 85 Year
  Sex: Female

DRUGS (9)
  1. ISOSORBIDE MONONITRATE [Concomitant]
     Route: 065
  2. ATIVAN [Concomitant]
     Route: 065
  3. JANUVIA [Suspect]
     Indication: TYPE 2 DIABETES MELLITUS
     Route: 048
     Dates: start: 20070727, end: 20100706
  4. LOTRISONE [Concomitant]
     Route: 065
  5. METFORMIN [Concomitant]
     Route: 065
  6. ATENOLOL [Concomitant]
     Route: 065
  7. DIOVAN HCT [Concomitant]
     Route: 065
  8. SIMVASTATIN [Concomitant]
     Route: 065
  9. PLAVIX [Concomitant]
     Route: 065

REACTIONS (1)
  - PANCREATIC CARCINOMA [None]
